FAERS Safety Report 6905653-1 (Version None)
Quarter: 2010Q3

REPORT INFORMATION
  Report Type: 
  Country: None (occurrence: None)
  Receive Date: 20100804
  Receipt Date: 20100723
  Transmission Date: 20110219
  Serious: Yes (Death)
  Sender: FDA-Public Use
  Company Number: US-PFIZER INC-2010060613

PATIENT
  Sex: Male

DRUGS (7)
  1. SUTENT [Suspect]
     Indication: HEPATIC NEOPLASM MALIGNANT
     Dosage: 37.5 MG, 1X/DAY
     Dates: start: 20100121, end: 20100222
  2. BUMEX [Concomitant]
  3. ALDACTONE [Concomitant]
  4. PROMETHAZINE HYDROCHLORIDE [Concomitant]
  5. METRONIDAZOLE [Concomitant]
  6. REGLAN [Concomitant]
  7. LACTULON [Concomitant]

REACTIONS (2)
  - DISEASE PROGRESSION [None]
  - HEPATIC NEOPLASM MALIGNANT [None]
